FAERS Safety Report 17052001 (Version 1)
Quarter: 2019Q4

REPORT INFORMATION
  Report Type: Spontaneous
  Country: US (occurrence: US)
  Receive Date: 20191120
  Receipt Date: 20191120
  Transmission Date: 20200122
  Serious: No
  Sender: FDA-Public Use
  Company Number: US-JNJFOC-20191120031

PATIENT
  Sex: Female

DRUGS (3)
  1. TYLENOL [Suspect]
     Active Substance: ACETAMINOPHEN
     Indication: HYPERTENSION
  2. TYLENOL [Suspect]
     Active Substance: ACETAMINOPHEN
     Indication: POLYCYTHAEMIA VERA
     Route: 048
  3. TYLENOL [Suspect]
     Active Substance: ACETAMINOPHEN
     Indication: PORTAL VEIN THROMBOSIS

REACTIONS (2)
  - Product packaging difficult to open [Unknown]
  - Product use in unapproved indication [Unknown]
